FAERS Safety Report 23131663 (Version 2)
Quarter: 2023Q4

REPORT INFORMATION
  Report Type: Report from Study
  Country: US (occurrence: US)
  Receive Date: 20231031
  Receipt Date: 20231110
  Transmission Date: 20240110
  Serious: Yes (Hospitalization, Other)
  Sender: FDA-Public Use
  Company Number: US-TAKEDA-2023TUS087073

PATIENT
  Age: 54 Year
  Sex: Male

DRUGS (1)
  1. MOBOCERTINIB [Suspect]
     Active Substance: MOBOCERTINIB
     Indication: Lung neoplasm malignant
     Dosage: 160 MILLIGRAM, QD
     Route: 048
     Dates: start: 20230828

REACTIONS (14)
  - Depressed level of consciousness [Unknown]
  - Dehydration [Unknown]
  - Hepatic enzyme increased [Unknown]
  - Dysphagia [Unknown]
  - Nail bed disorder [Unknown]
  - Heart rate increased [Unknown]
  - Asthenia [Unknown]
  - Cough [Unknown]
  - Fatigue [Unknown]
  - Skin exfoliation [Unknown]
  - Diarrhoea [Unknown]
  - Product use complaint [Unknown]
  - Product quality issue [Unknown]
  - Product dose omission issue [Unknown]

NARRATIVE: CASE EVENT DATE: 20230901
